FAERS Safety Report 10471463 (Version 1)
Quarter: 2014Q3

REPORT INFORMATION
  Report Type: Other
  Country: GB (occurrence: GB)
  Receive Date: 20140923
  Receipt Date: 20140923
  Transmission Date: 20150326
  Serious: Yes (Other)
  Sender: FDA-Public Use
  Company Number: GB-CUBIST PHARMACEUTICALS, INC.-2014CBST001329

PATIENT

DRUGS (2)
  1. CUBICIN [Suspect]
     Active Substance: DAPTOMYCIN
     Indication: PRODUCT USED FOR UNKNOWN INDICATION
     Dosage: 480 MG, QD
     Route: 065
     Dates: start: 20140612
  2. COLOMYCIN /00013206/ [Suspect]
     Active Substance: COLISTIMETHATE SODIUM
     Indication: OSTEOMYELITIS
     Dosage: 2 MIU, TID
     Route: 042
     Dates: start: 20140612, end: 20140626

REACTIONS (4)
  - Off label use [Recovered/Resolved]
  - Musculoskeletal pain [Unknown]
  - Diabetic foot infection [Not Recovered/Not Resolved]
  - Paraesthesia [Recovered/Resolved]

NARRATIVE: CASE EVENT DATE: 20140612
